FAERS Safety Report 15243094 (Version 3)
Quarter: 2019Q3

REPORT INFORMATION
  Report Type: Spontaneous
  Country: US (occurrence: US)
  Receive Date: 20180806
  Receipt Date: 20190826
  Transmission Date: 20191004
  Serious: Yes (Hospitalization, Other)
  Sender: FDA-Public Use
  Company Number: US-JNJFOC-20180732380

PATIENT
  Age: 60 Year
  Sex: Male

DRUGS (2)
  1. XARELTO [Suspect]
     Active Substance: RIVAROXABAN
     Indication: KNEE ARTHROPLASTY
  2. XARELTO [Suspect]
     Active Substance: RIVAROXABAN
     Indication: THROMBOSIS PROPHYLAXIS
     Route: 048
     Dates: start: 201705, end: 20170515

REACTIONS (4)
  - Shock haemorrhagic [Recovered/Resolved]
  - Gastrointestinal haemorrhage [Unknown]
  - Upper gastrointestinal haemorrhage [Recovering/Resolving]
  - Ecchymosis [Unknown]

NARRATIVE: CASE EVENT DATE: 201705
